FAERS Safety Report 23617952 (Version 1)
Quarter: 2024Q1

REPORT INFORMATION
  Report Type: Spontaneous
  Country: US (occurrence: US)
  Receive Date: 20240311
  Receipt Date: 20240311
  Transmission Date: 20240409
  Serious: No
  Sender: FDA-Public Use
  Company Number: US-ALKERMES INC.-ALK-2024-000585

PATIENT
  Age: 16 Year
  Sex: Male

DRUGS (1)
  1. ARISTADA [Suspect]
     Active Substance: ARIPIPRAZOLE LAUROXIL
     Indication: Attention deficit hyperactivity disorder
     Dosage: 1064 MILLIGRAM, EVERY 5 WEEKS
     Route: 030

REACTIONS (4)
  - Irritability [Unknown]
  - Off label use [Unknown]
  - Mania [Unknown]
  - Anxiety [Unknown]
